FAERS Safety Report 19924756 (Version 8)
Quarter: 2022Q3

REPORT INFORMATION
  Report Type: Report from Study
  Country: US (occurrence: US)
  Receive Date: 20211006
  Receipt Date: 20220920
  Transmission Date: 20221027
  Serious: No
  Sender: FDA-Public Use
  Company Number: US-NOVARTISTESTPH-NVSC2021US228016

PATIENT
  Sex: Male

DRUGS (4)
  1. ENTRESTO [Suspect]
     Active Substance: SACUBITRIL\VALSARTAN
     Indication: Product used for unknown indication
     Dosage: UNK UNK, BID
     Route: 048
  2. ENTRESTO [Suspect]
     Active Substance: SACUBITRIL\VALSARTAN
     Dosage: UNK
     Route: 048
  3. ENTRESTO [Suspect]
     Active Substance: SACUBITRIL\VALSARTAN
     Dosage: 0.5 DOSAGE FORM, BID (HALF IN AM AND HALF IN PM)
     Route: 065
  4. ELIQUIS [Concomitant]
     Active Substance: APIXABAN
     Indication: Product used for unknown indication
     Dosage: UNK (STARTED IN THE LAST WEEK)
     Route: 065

REACTIONS (13)
  - Weight increased [Unknown]
  - Sensory disturbance [Unknown]
  - Sinusitis [Unknown]
  - Ear pain [Unknown]
  - Frustration tolerance decreased [Unknown]
  - Skin disorder [Unknown]
  - Dehydration [Unknown]
  - Sluggishness [Unknown]
  - Fatigue [Unknown]
  - Decreased appetite [Unknown]
  - Secretion discharge [Unknown]
  - Dizziness [Unknown]
  - Wrong technique in product usage process [Unknown]
